FAERS Safety Report 19921376 (Version 1)
Quarter: 2021Q4

REPORT INFORMATION
  Report Type: Other
  Country: CA (occurrence: CA)
  Receive Date: 20211006
  Receipt Date: 20211006
  Transmission Date: 20220303
  Serious: Yes (Hospitalization, Other)
  Sender: FDA-Public Use
  Company Number: CA-ROCHE-2326365

PATIENT
  Age: 62 Year
  Sex: Male

DRUGS (13)
  1. RITUXAN [Suspect]
     Active Substance: RITUXIMAB
     Indication: Granulomatosis with polyangiitis
     Dosage: FIRST INFUSION RECEIVED IN HOSPITAL?INDUCTION (DAY 1) RECEIVED OUTSIDE RPAP IN HOSPITAL.?PIR/BATCH/L
     Route: 042
     Dates: start: 20190508, end: 20190522
  2. RITUXAN [Suspect]
     Active Substance: RITUXIMAB
     Route: 042
     Dates: start: 20190927, end: 20190927
  3. RITUXAN [Suspect]
     Active Substance: RITUXIMAB
     Dosage: ONGOING; RETREATMENT (PRESCRIBED AS ONCE EVERY 4 MONTHS)
     Route: 042
     Dates: start: 20200312
  4. ALDACTONE [Concomitant]
     Active Substance: SPIRONOLACTONE
     Indication: Product used for unknown indication
  5. AMLODIPINE [Concomitant]
     Active Substance: AMLODIPINE BESYLATE
     Indication: Product used for unknown indication
  6. IRBESARTAN [Concomitant]
     Active Substance: IRBESARTAN
     Indication: Product used for unknown indication
  7. INDAPAMIDE [Concomitant]
     Active Substance: INDAPAMIDE
     Indication: Product used for unknown indication
  8. BENADRYL [Concomitant]
     Active Substance: DIPHENHYDRAMINE HYDROCHLORIDE
     Indication: Premedication
     Dosage: ONGOING; FIRST RPAP DOSE; UNCONFIRMED IF RECEIVED PREVIOUSLY
     Route: 048
     Dates: start: 20190522
  9. BISOPROLOL FUMARATE [Concomitant]
     Active Substance: BISOPROLOL FUMARATE
     Indication: Product used for unknown indication
  10. SOLU-MEDROL [Concomitant]
     Active Substance: METHYLPREDNISOLONE SODIUM SUCCINATE
     Indication: Premedication
     Dosage: ONGOING; FIRST RPAP DOSE; UNCONFIRMED IF RECEIVED PREVIOUSLY.
     Route: 042
     Dates: start: 20190522
  11. TYLENOL [Concomitant]
     Active Substance: ACETAMINOPHEN
     Indication: Premedication
     Dosage: FIRST RPAP DOSE; UNCONFIRMED IF RECEIVED PREVIOUSLY.
     Route: 048
     Dates: start: 20190522
  12. IMURAN [Concomitant]
     Active Substance: AZATHIOPRINE
     Indication: Congenital syphilitic osteochondritis
  13. PLAVIX [Concomitant]
     Active Substance: CLOPIDOGREL BISULFATE
     Dosage: STARTED AFTER HAVING CORONARY STENTS IN AUG-2019
     Dates: start: 2019

REACTIONS (13)
  - Cytomegalovirus infection [Recovered/Resolved]
  - Immunosuppression [Unknown]
  - Pancytopenia [Recovered/Resolved]
  - Anaemia [Unknown]
  - Bicytopenia [Unknown]
  - Blood pressure systolic increased [Unknown]
  - Heart rate decreased [Unknown]
  - Auditory disorder [Not Recovered/Not Resolved]
  - Hypotension [Unknown]
  - Off label use [Unknown]
  - Blood pressure increased [Unknown]
  - Blood pressure diastolic abnormal [Unknown]
  - Blood pressure systolic abnormal [Unknown]

NARRATIVE: CASE EVENT DATE: 20190522
